FAERS Safety Report 13451240 (Version 1)
Quarter: 2017Q2

REPORT INFORMATION
  Report Type: Spontaneous
  Country: US (occurrence: US)
  Receive Date: 20170417
  Receipt Date: 20170417
  Transmission Date: 20170830
  Serious: Yes (Life-Threatening, Hospitalization, Disabling)
  Sender: FDA-Public Use
  Company Number: None

PATIENT
  Age: 70 Year
  Sex: Female
  Weight: 81 kg

DRUGS (17)
  1. FUROSEMIDE. [Concomitant]
     Active Substance: FUROSEMIDE
  2. METFORMIN [Concomitant]
     Active Substance: METFORMIN HYDROCHLORIDE
  3. VITAMIN E [Concomitant]
     Active Substance: .ALPHA.-TOCOPHEROL
  4. HUMIRA [Suspect]
     Active Substance: ADALIMUMAB
     Indication: PSORIASIS
     Dosage: ?          QUANTITY:0.8 INJECTION(S);OTHER FREQUENCY:EVERY 14 DAYS;OTHER ROUTE:SUBCUTANEOUS?
     Route: 058
     Dates: start: 20120622, end: 20170318
  5. CLOBETASOL OINT [Concomitant]
  6. PRAVASTATIN. [Concomitant]
     Active Substance: PRAVASTATIN
  7. TRAMADOL. [Concomitant]
     Active Substance: TRAMADOL
  8. ASA [Concomitant]
     Active Substance: ASPIRIN
  9. METOPROLOL TARTRATE. [Concomitant]
     Active Substance: METOPROLOL TARTRATE
  10. PANTOPRAZOLE [Concomitant]
     Active Substance: PANTOPRAZOLE
  11. HUMIRA [Suspect]
     Active Substance: ADALIMUMAB
     Indication: PSORIATIC ARTHROPATHY
     Dosage: ?          QUANTITY:0.8 INJECTION(S);OTHER FREQUENCY:EVERY 14 DAYS;OTHER ROUTE:SUBCUTANEOUS?
     Route: 058
     Dates: start: 20120622, end: 20170318
  12. LEVOTHYROXINE. [Concomitant]
     Active Substance: LEVOTHYROXINE
  13. SPIRONOLACTONE. [Concomitant]
     Active Substance: SPIRONOLACTONE
  14. GABAPENTIN. [Concomitant]
     Active Substance: GABAPENTIN
  15. ENTRESTO [Concomitant]
     Active Substance: SACUBITRIL\VALSARTAN
  16. FERROUS SULFATE. [Concomitant]
     Active Substance: FERROUS SULFATE
  17. VITAMIN D2 (ERGO) [Concomitant]

REACTIONS (2)
  - Cardiac failure congestive [None]
  - Dyspnoea [None]

NARRATIVE: CASE EVENT DATE: 20170404
